FAERS Safety Report 23285881 (Version 1)
Quarter: 2023Q4

REPORT INFORMATION
  Report Type: Spontaneous
  Country: IT (occurrence: IT)
  Receive Date: 20231212
  Receipt Date: 20231212
  Transmission Date: 20240109
  Serious: Yes (Other)
  Sender: FDA-Public Use
  Company Number: IT-ABBVIE-5532448

PATIENT
  Age: 78 Year

DRUGS (1)
  1. DALBAVANCIN [Suspect]
     Active Substance: DALBAVANCIN
     Indication: Streptococcal infection
     Dosage: TIME INTERVAL: AS NECESSARY: 1500 MG + 1500 MG THEN ACCORDING TDM
     Route: 042

REACTIONS (2)
  - Renal failure [Unknown]
  - Off label use [Unknown]
